FAERS Safety Report 17305083 (Version 2)
Quarter: 2020Q1

REPORT INFORMATION
  Report Type: Spontaneous
  Country: US (occurrence: US)
  Receive Date: 20200122
  Receipt Date: 20200212
  Transmission Date: 20200409
  Serious: No
  Sender: FDA-Public Use
  Company Number: US-LUNDBECK-DKLU3010815

PATIENT
  Age: 49 Year
  Sex: Female

DRUGS (2)
  1. NORTHERA [Suspect]
     Active Substance: DROXIDOPA
     Indication: AUTONOMIC NEUROPATHY
     Dosage: TITRATION COMPLETE
     Route: 065
     Dates: start: 20191030
  2. NORTHERA [Suspect]
     Active Substance: DROXIDOPA
     Indication: DIZZINESS

REACTIONS (5)
  - Muscle tightness [Unknown]
  - Product dose omission [Unknown]
  - Constipation [Unknown]
  - Dysphagia [Unknown]
  - Product administration error [Unknown]

NARRATIVE: CASE EVENT DATE: 202001
